FAERS Safety Report 9373465 (Version 2)
Quarter: 2013Q3

REPORT INFORMATION
  Report Type: Spontaneous
  Country: US (occurrence: US)
  Receive Date: 20130627
  Receipt Date: 20130719
  Transmission Date: 20140515
  Serious: Yes (Hospitalization, Other)
  Sender: FDA-Public Use
  Company Number: US-INCYTE CORPORATION-2013IN000925

PATIENT
  Age: 59 Year
  Sex: Male

DRUGS (11)
  1. JAKAFI [Suspect]
     Indication: MYELOFIBROSIS
     Dosage: 20 MG, BID
     Route: 048
     Dates: start: 201302
  2. JAKAFI [Suspect]
     Dosage: 20 MG, Q MORNING AND 10 MG, Q NIGHT
     Route: 048
     Dates: start: 201304, end: 20130426
  3. WELLBUTRIN [Concomitant]
  4. ATENOLOL [Concomitant]
  5. LOSARTAN [Concomitant]
  6. SODIUM BICARBONATE [Concomitant]
  7. ALLOPURINOL [Concomitant]
  8. BABY ASPIRIN [Concomitant]
  9. STOOL SOFTENER [Concomitant]
  10. CLARITIN [Concomitant]
  11. MVI [Concomitant]
     Dosage: TABLET

REACTIONS (7)
  - Hospitalisation [Unknown]
  - Haemoglobin decreased [Not Recovered/Not Resolved]
  - Platelet count increased [Not Recovered/Not Resolved]
  - White blood cell count increased [Not Recovered/Not Resolved]
  - Red blood cell count decreased [Not Recovered/Not Resolved]
  - Haematocrit decreased [Not Recovered/Not Resolved]
  - Drug ineffective [Unknown]
